FAERS Safety Report 10460086 (Version 1)
Quarter: 2014Q3

REPORT INFORMATION
  Report Type: Spontaneous
  Country: BR (occurrence: BR)
  Receive Date: 20140917
  Receipt Date: 20140917
  Transmission Date: 20150326
  Serious: Yes (Other)
  Sender: FDA-Public Use
  Company Number: BR-ELI_LILLY_AND_COMPANY-BR201409002460

PATIENT
  Sex: Female
  Weight: 60 kg

DRUGS (13)
  1. HUMALOG [Suspect]
     Active Substance: INSULIN LISPRO
     Dosage: 8 IU, OTHER
     Route: 058
     Dates: start: 201407
  2. THIOCTACID                         /00213801/ [Concomitant]
     Active Substance: .ALPHA.-LIPOIC ACID
     Indication: DIABETIC NEUROPATHY
     Dosage: 600 MG, EACH MORNING
     Route: 065
  3. HUMALOG [Suspect]
     Active Substance: INSULIN LISPRO
     Dosage: 6 IU, OTHER
     Route: 058
     Dates: start: 201407
  4. PYRIDOXAMINE HYDROCHLORIDE\THIAMINE HYDROCHLORIDE\CYANOCOBALAMIN [Concomitant]
     Active Substance: CYANOCOBALAMIN\PYRIDOXAMINE HYDROCHLORIDE\THIAMINE HYDROCHLORIDE
     Indication: DIABETIC NEUROPATHY
     Dosage: 5000 DF, QD
     Route: 065
  5. HUMALOG [Suspect]
     Active Substance: INSULIN LISPRO
     Dosage: 10 IU, OTHER
     Route: 058
     Dates: start: 201407
  6. HUMALOG MIX50/50 [Suspect]
     Active Substance: INSULIN LISPRO
     Dosage: 16 IU, EACH EVENING
     Route: 058
     Dates: start: 201407
  7. GABAPENTINA [Concomitant]
     Active Substance: GABAPENTIN
     Indication: DIABETIC NEUROPATHY
     Dosage: 300 MG, QD
     Route: 065
  8. MILGAMMA                           /00089801/ [Concomitant]
     Indication: DIABETIC NEUROPATHY
     Dosage: 150 MG, TID
     Route: 065
  9. COLECALCIFEROL [Concomitant]
     Active Substance: CHOLECALCIFEROL
     Indication: DIABETIC NEUROPATHY
     Dosage: 1 DF, WEEKLY (1/W)
     Route: 065
  10. HUMALOG [Suspect]
     Active Substance: INSULIN LISPRO
     Indication: TYPE 1 DIABETES MELLITUS
     Dosage: 4 IU, OTHER
     Route: 058
     Dates: start: 201407
  11. HUMALOG [Suspect]
     Active Substance: INSULIN LISPRO
     Dosage: 12 IU, OTHER
     Route: 058
     Dates: start: 201407
  12. HUMALOG MIX50/50 [Suspect]
     Active Substance: INSULIN LISPRO
     Indication: TYPE 1 DIABETES MELLITUS
     Dosage: 28 IU, EACH MORNING
     Route: 058
     Dates: start: 201407
  13. GABAPENTINA [Concomitant]
     Active Substance: GABAPENTIN
     Dosage: 600 MG, EACH EVENING
     Route: 065

REACTIONS (4)
  - Injection site pain [Recovered/Resolved]
  - Cataract [Recovering/Resolving]
  - Insulin resistance [Unknown]
  - Blood glucose increased [Recovered/Resolved]
